FAERS Safety Report 23528647 (Version 1)
Quarter: 2024Q1

REPORT INFORMATION
  Report Type: Spontaneous
  Country: GB (occurrence: GB)
  Receive Date: 20240215
  Receipt Date: 20240215
  Transmission Date: 20240410
  Serious: Yes (Hospitalization)
  Sender: FDA-Public Use
  Company Number: GB-BIOGEN-2024BI01249992

PATIENT
  Age: 50 Year
  Sex: Female

DRUGS (1)
  1. TECFIDERA [Suspect]
     Active Substance: DIMETHYL FUMARATE
     Indication: Multiple sclerosis
     Route: 050

REACTIONS (12)
  - Overdose [Unknown]
  - Arthropathy [Unknown]
  - Fall [Recovered/Resolved]
  - Arthralgia [Unknown]
  - Urinary bladder haemorrhage [Unknown]
  - Hyperthyroidism [Unknown]
  - Hypercalcaemia [Unknown]
  - Pelvic bone injury [Unknown]
  - Thyroid disorder [Unknown]
  - Mass [Unknown]
  - Traumatic haemorrhage [Unknown]
  - Rash [Unknown]

NARRATIVE: CASE EVENT DATE: 20240101
